FAERS Safety Report 5230164-1 (Version None)
Quarter: 2007Q1

REPORT INFORMATION
  Report Type: 
  Country: None (occurrence: None)
  Receive Date: 20070206
  Receipt Date: 20061010
  Transmission Date: 20070707
  Serious: No
  Sender: FDA-Public Use
  Company Number: US-GLAXOSMITHKLINE-A0620338A

PATIENT
  Age: 53 Year
  Sex: Male
  Weight: 106.8 kg

DRUGS (4)
  1. PAXIL [Suspect]
     Dosage: 37.5MG PER DAY
     Route: 048
  2. ALTACE [Concomitant]
  3. PRAVASTATIN [Concomitant]
  4. CLONAZEPAM [Concomitant]

REACTIONS (4)
  - ANXIETY [None]
  - HEADACHE [None]
  - HYPERHIDROSIS [None]
  - PHARMACEUTICAL PRODUCT COMPLAINT [None]
